FAERS Safety Report 7993048-1 (Version None)
Quarter: 2011Q4

REPORT INFORMATION
  Report Type: 
  Country: None (occurrence: None)
  Receive Date: 20111219
  Receipt Date: 20111212
  Transmission Date: 20120403
  Serious: Yes (Death, Hospitalization)
  Sender: FDA-Public Use
  Company Number: JP-BAXTER-2011BH024512

PATIENT
  Age: 64 Year
  Sex: Male

DRUGS (20)
  1. CLARITHROMYCIN [Concomitant]
     Indication: IDIOPATHIC PULMONARY FIBROSIS
     Route: 048
     Dates: start: 20061101
  2. SOLU-MEDROL [Concomitant]
     Route: 065
     Dates: start: 20110630, end: 20110702
  3. PIRFENIDONE [Suspect]
     Indication: IDIOPATHIC PULMONARY FIBROSIS
     Route: 048
     Dates: start: 20091118
  4. PIRFENIDONE [Suspect]
     Route: 048
     Dates: start: 20090727, end: 20091020
  5. PREDNISOLONE [Suspect]
     Route: 048
     Dates: start: 20110520, end: 20110629
  6. PULMICORT [Concomitant]
     Indication: IDIOPATHIC PULMONARY FIBROSIS
     Route: 055
     Dates: start: 20061101
  7. NEORAL [Concomitant]
     Indication: IDIOPATHIC PULMONARY FIBROSIS
     Route: 048
     Dates: start: 20110603, end: 20110629
  8. PREDNISOLONE [Suspect]
     Route: 048
     Dates: start: 20110428, end: 20110516
  9. SOLU-MEDROL [Concomitant]
     Route: 065
     Dates: start: 20110517, end: 20110519
  10. PREDNISOLONE [Suspect]
     Route: 048
     Dates: start: 20110307, end: 20110427
  11. OMEPRAZOLE [Concomitant]
     Indication: PROPHYLAXIS
     Route: 048
     Dates: start: 20110317, end: 20110323
  12. ACETYLCYSTEINE [Concomitant]
     Indication: IDIOPATHIC PULMONARY FIBROSIS
     Route: 055
     Dates: start: 20061101
  13. VENTOLIN [Concomitant]
     Indication: IDIOPATHIC PULMONARY FIBROSIS
     Route: 055
     Dates: start: 20061101
  14. SULFAMETHOXAZOLE AND TRIMETHOPRIM [Concomitant]
     Indication: PROPHYLAXIS
     Route: 048
     Dates: start: 20110318
  15. CYCLOPHOSPHAMIDE [Suspect]
     Indication: OFF LABEL USE
     Route: 065
     Dates: start: 20110524, end: 20110524
  16. CYCLOPHOSPHAMIDE [Suspect]
     Indication: IDIOPATHIC PULMONARY FIBROSIS
     Route: 065
     Dates: start: 20110524, end: 20110524
  17. PREDNISOLONE [Suspect]
     Indication: IDIOPATHIC PULMONARY FIBROSIS
     Route: 048
     Dates: start: 20110704
  18. PIRFENIDONE [Suspect]
     Route: 048
     Dates: start: 20090714, end: 20090726
  19. SINGULAIR [Concomitant]
     Indication: PRODUCT USED FOR UNKNOWN INDICATION
     Route: 048
     Dates: start: 20061101
  20. SOLU-MEDROL [Concomitant]
     Indication: IDIOPATHIC PULMONARY FIBROSIS
     Route: 065
     Dates: start: 20110304, end: 20110306

REACTIONS (4)
  - RASH [None]
  - PNEUMONIA [None]
  - IDIOPATHIC PULMONARY FIBROSIS [None]
  - PHOTOSENSITIVITY REACTION [None]
